FAERS Safety Report 7600836-X (Version None)
Quarter: 2011Q3

REPORT INFORMATION
  Report Type: 
  Country: None (occurrence: None)
  Receive Date: 20110711
  Receipt Date: 20110701
  Transmission Date: 20111222
  Serious: Yes (Death, Hospitalization)
  Sender: FDA-Public Use
  Company Number: JP-ACTELION-A-CH2011-51149

PATIENT
  Sex: Female
  Weight: 4 kg

DRUGS (4)
  1. SPIRONOLACTONE [Concomitant]
  2. BERAPROST SODIUM [Concomitant]
  3. TRACLEER [Suspect]
     Indication: PULMONARY ARTERIAL HYPERTENSION
     Dosage: 2 MG, BID
     Route: 048
     Dates: start: 20110201, end: 20110217
  4. FUROSEMIDE [Concomitant]

REACTIONS (3)
  - MULTI-ORGAN FAILURE [None]
  - TRACHEAL OPERATION [None]
  - TRACHEAL STENOSIS [None]
